FAERS Safety Report 8895731 (Version 1)
Quarter: 2012Q4

REPORT INFORMATION
  Report Type: 
  Country: FR (occurrence: FR)
  Receive Date: 20121108
  Receipt Date: 20121108
  Transmission Date: 20130627
  Serious: Yes (Life-Threatening, Hospitalization)
  Sender: FDA-Public Use
  Company Number: FR-009507513-1211FRA002101

PATIENT
  Age: 68 Year
  Sex: Female

DRUGS (7)
  1. ALENDRONATE SODIUM\CHOLECALCIFEROL [Suspect]
     Dosage: 1 DF, qw
     Route: 048
     Dates: end: 20120405
  2. ZOCOR 20MG [Concomitant]
  3. PIASCLEDINE [Concomitant]
     Dosage: UNK
  4. KARDEGIC [Concomitant]
     Dosage: UNK
  5. ISOPTINE [Concomitant]
     Dosage: UNK
  6. OROCAL D3 [Concomitant]
     Dosage: UNK
  7. COOLMETEC [Concomitant]
     Dosage: UNK

REACTIONS (7)
  - Haemolytic uraemic syndrome [Recovering/Resolving]
  - Thyroid neoplasm [None]
  - Blood pressure systolic increased [None]
  - Deep vein thrombosis [None]
  - Haematoma [None]
  - Device related infection [None]
  - Thrombotic microangiopathy [None]
